FAERS Safety Report 6323091-X (Version None)
Quarter: 2009Q3

REPORT INFORMATION
  Report Type: 
  Country: None (occurrence: None)
  Receive Date: 20090824
  Receipt Date: 20090320
  Transmission Date: 20100115
  Serious: No
  Sender: FDA-Public Use
  Company Number: US-ABBOTT-09P-163-0563972-00

PATIENT
  Sex: Male

DRUGS (12)
  1. NIASPAN [Suspect]
     Indication: BLOOD CHOLESTEROL INCREASED
     Dosage: AT BEDTIME
     Dates: start: 20090306
  2. ASPIRIN [Concomitant]
     Indication: DRUG USE FOR UNKNOWN INDICATION
  3. ^JEVANONCELLULAR^ HEALTH-SUPPLEMENT [Concomitant]
     Indication: DRUG USE FOR UNKNOWN INDICATION
  4. CARDIOSTEROL [Concomitant]
     Indication: DRUG USE FOR UNKNOWN INDICATION
  5. FISH OIL [Concomitant]
     Indication: DRUG USE FOR UNKNOWN INDICATION
  6. LYSINE [Concomitant]
     Indication: DRUG USE FOR UNKNOWN INDICATION
  7. LUTEIN [Concomitant]
     Indication: DRUG USE FOR UNKNOWN INDICATION
  8. VIT D [Concomitant]
     Indication: DRUG USE FOR UNKNOWN INDICATION
  9. CALCIUM CITRATE [Concomitant]
     Indication: DRUG USE FOR UNKNOWN INDICATION
  10. CARDIOTAB MVT [Concomitant]
     Indication: DRUG USE FOR UNKNOWN INDICATION
  11. CO Q10 [Concomitant]
     Indication: DRUG USE FOR UNKNOWN INDICATION
  12. VITAMIN B-12 [Concomitant]
     Indication: DRUG USE FOR UNKNOWN INDICATION
     Route: 050

REACTIONS (1)
  - BLOOD GLUCOSE INCREASED [None]
